FAERS Safety Report 6735330-1 (Version None)
Quarter: 2010Q2

REPORT INFORMATION
  Report Type: 
  Country: None (occurrence: None)
  Receive Date: 20100521
  Receipt Date: 20100305
  Transmission Date: 20101027
  Serious: Yes (Other)
  Sender: FDA-Public Use
  Company Number: CN-ROCHE-636809

PATIENT
  Age: 76 Year
  Sex: Male
  Weight: 50 kg

DRUGS (3)
  1. XELODA [Suspect]
     Indication: GASTRIC CANCER
     Route: 048
     Dates: start: 20090505, end: 20090901
  2. XELODA [Suspect]
     Route: 048
     Dates: start: 20090901
  3. UNSPECIFIED DRUGS [Concomitant]
     Indication: GASTRIC CANCER
     Dosage: DRUG NAME REPORTED AS CHINESE MEDICINE.
     Route: 048
     Dates: start: 20090505

REACTIONS (11)
  - BLOOD PRESSURE DIASTOLIC DECREASED [None]
  - CARBOHYDRATE ANTIGEN 19-9 INCREASED [None]
  - CHEST PAIN [None]
  - DECREASED APPETITE [None]
  - DIARRHOEA [None]
  - FAECES DISCOLOURED [None]
  - FATIGUE [None]
  - METASTASES TO LIVER [None]
  - RED BLOOD CELL COUNT DECREASED [None]
  - SKIN HYPERPIGMENTATION [None]
  - TUMOUR MARKER INCREASED [None]
